FAERS Safety Report 24647101 (Version 1)
Quarter: 2024Q4

REPORT INFORMATION
  Report Type: Spontaneous
  Country: AU (occurrence: AU)
  Receive Date: 20241121
  Receipt Date: 20241121
  Transmission Date: 20250114
  Serious: Yes (Hospitalization, Disabling, Other)
  Sender: ACCORD
  Company Number: AU-Accord-456351

PATIENT
  Age: 43 Year
  Sex: Female

DRUGS (2)
  1. METHOTREXATE [Suspect]
     Active Substance: METHOTREXATE
     Indication: Rheumatoid arthritis
     Dosage: 20 MG WEEKLY
  2. FOLIC ACID [Concomitant]
     Active Substance: FOLIC ACID

REACTIONS (7)
  - Fall [Recovered/Resolved]
  - Hand fracture [Unknown]
  - Paraneoplastic encephalomyelitis [Recovering/Resolving]
  - Stiff person syndrome [Recovering/Resolving]
  - Monoclonal B-cell lymphocytosis [Recovering/Resolving]
  - Lymphoproliferative disorder [Recovering/Resolving]
  - Thyroid disorder [Recovered/Resolved]
